FAERS Safety Report 14010942 (Version 2)
Quarter: 2017Q4

REPORT INFORMATION
  Report Type: Spontaneous
  Country: US (occurrence: US)
  Receive Date: 20170926
  Receipt Date: 20171114
  Transmission Date: 20180321
  Serious: No
  Sender: FDA-Public Use
  Company Number: US-PFIZER INC-2017413535

PATIENT
  Age: 72 Year
  Sex: Female

DRUGS (1)
  1. COPPER CHLORIDE [Suspect]
     Active Substance: CUPRIC CHLORIDE
     Dosage: UNK

REACTIONS (1)
  - Drug hypersensitivity [Unknown]
